FAERS Safety Report 7732238-X (Version None)
Quarter: 2011Q3

REPORT INFORMATION
  Report Type: 
  Country: None (occurrence: None)
  Receive Date: 20110906
  Receipt Date: 20110826
  Transmission Date: 20111222
  Serious: Yes (Hospitalization, Disabling, Other)
  Sender: FDA-Public Use
  Company Number: US-ELI_LILLY_AND_COMPANY-US201108008536

PATIENT
  Sex: Male

DRUGS (2)
  1. LEVEMIR [Concomitant]
     Dosage: UNK
     Dates: end: 20110501
  2. HUMALOG MIX 75/25 [Suspect]
     Indication: DIABETES MELLITUS
     Dosage: 25 U, TID
     Dates: start: 20020101

REACTIONS (9)
  - BLOOD GLUCOSE DECREASED [None]
  - CHILLS [None]
  - MUSCULOSKELETAL PAIN [None]
  - HOSPITALISATION [None]
  - PAIN [None]
  - RHEUMATOID ARTHRITIS [None]
  - MOBILITY DECREASED [None]
  - MALAISE [None]
  - ARTHRALGIA [None]
